FAERS Safety Report 6201307-8 (Version None)
Quarter: 2009Q2

REPORT INFORMATION
  Report Type: 
  Country: None (occurrence: None)
  Receive Date: 20090526
  Receipt Date: 20090515
  Transmission Date: 20091009
  Serious: Yes (Hospitalization, Other)
  Sender: FDA-Public Use
  Company Number: PHEH2009US04916

PATIENT
  Sex: Female

DRUGS (5)
  1. RECLAST [Suspect]
     Dosage: UNK
     Dates: start: 20090320
  2. BYSTOLIC [Concomitant]
  3. AMLODIPINE [Concomitant]
  4. POTASSIUM CHLORIDE [Concomitant]
  5. CALCIUM [Concomitant]

REACTIONS (27)
  - ASTHENIA [None]
  - BALANCE DISORDER [None]
  - BLOOD POTASSIUM DECREASED [None]
  - CHILLS [None]
  - DEHYDRATION [None]
  - DISORIENTATION [None]
  - DRY MOUTH [None]
  - DYSGEUSIA [None]
  - EAR DISCOMFORT [None]
  - FATIGUE [None]
  - FEELING ABNORMAL [None]
  - GAIT DISTURBANCE [None]
  - INCOHERENT [None]
  - INSOMNIA [None]
  - LOCAL SWELLING [None]
  - MALAISE [None]
  - MUSCLE SPASMS [None]
  - MUSCULOSKELETAL DISCOMFORT [None]
  - NECK PAIN [None]
  - ORAL DISCOMFORT [None]
  - PERFORMANCE STATUS DECREASED [None]
  - RENAL DISORDER [None]
  - RESTLESSNESS [None]
  - SENSATION OF HEAVINESS [None]
  - SPEECH DISORDER [None]
  - STRESS [None]
  - WEIGHT DECREASED [None]
